FAERS Safety Report 7369272-8 (Version None)
Quarter: 2011Q1

REPORT INFORMATION
  Report Type: 
  Country: None (occurrence: None)
  Receive Date: 20110323
  Receipt Date: 20110317
  Transmission Date: 20110831
  Serious: Yes (Hospitalization)
  Sender: FDA-Public Use
  Company Number: A0906258A

PATIENT
  Age: 52 Year
  Sex: Female

DRUGS (2)
  1. AVANDIA [Suspect]
     Indication: DIABETES MELLITUS
     Route: 048
     Dates: start: 20040101, end: 20070101
  2. AVANDAMET [Suspect]
     Indication: DIABETES MELLITUS
     Route: 048
     Dates: start: 20040101, end: 20070101

REACTIONS (7)
  - CEREBROVASCULAR ACCIDENT [None]
  - RENAL FAILURE [None]
  - THROMBOSIS [None]
  - TRANSIENT ISCHAEMIC ATTACK [None]
  - ATRIAL FIBRILLATION [None]
  - MYOCARDIAL INFARCTION [None]
  - CEREBROVASCULAR DISORDER [None]
